FAERS Safety Report 20897277 (Version 2)
Quarter: 2022Q2

REPORT INFORMATION
  Report Type: Spontaneous
  Country: TR (occurrence: TR)
  Receive Date: 20220531
  Receipt Date: 20220608
  Transmission Date: 20220721
  Serious: Yes (Other)
  Sender: FDA-Public Use
  Company Number: TR-MLMSERVICE-20220518-3559314-1

PATIENT
  Age: 21 Year
  Sex: Male

DRUGS (7)
  1. METHOTREXATE SODIUM [Suspect]
     Active Substance: METHOTREXATE SODIUM
     Indication: Ocular neoplasm
     Dosage: INTRAVITREAL METHOTREXATE (400 UG/0.1 ML/WEEK)
     Route: 031
     Dates: start: 2018
  2. VINCRISTINE [Concomitant]
     Active Substance: VINCRISTINE
     Indication: Ocular neoplasm
     Dosage: HYPER-CVAD
     Dates: start: 2018
  3. DOXORUBICIN [Concomitant]
     Active Substance: DOXORUBICIN
     Indication: Ocular neoplasm
     Dosage: HYPER-CVAD
     Dates: start: 2018
  4. PREDNISOLONE [Concomitant]
     Active Substance: PREDNISOLONE
     Indication: Ocular neoplasm
     Dosage: HYPER-CVAD
     Dates: start: 2018
  5. CYCLOPHOSPHAMIDE [Concomitant]
     Active Substance: CYCLOPHOSPHAMIDE
     Indication: Ocular neoplasm
     Dosage: HYPER-CVAD
     Dates: start: 2018
  6. DORZOLAMIDE HYDROCHLORIDE\TIMOLOL MALEATE [Concomitant]
     Active Substance: DORZOLAMIDE HYDROCHLORIDE\TIMOLOL MALEATE
     Indication: Ocular neoplasm
     Dosage: DORZOLAMIDE / TIMOLOL 20 MG/ML + 5 MG/ML COMBINATION TWICE A DAY
     Route: 061
     Dates: start: 2018
  7. DEXAMETHASONE [Concomitant]
     Active Substance: DEXAMETHASONE
     Indication: Ocular neoplasm
     Dosage: UNK
     Route: 061
     Dates: start: 2018

REACTIONS (1)
  - Punctate keratitis [Recovered/Resolved]

NARRATIVE: CASE EVENT DATE: 20180101
